FAERS Safety Report 20797109 (Version 4)
Quarter: 2022Q3

REPORT INFORMATION
  Report Type: Report from Study
  Country: PL (occurrence: None)
  Receive Date: 20220506
  Receipt Date: 20220712
  Transmission Date: 20221026
  Serious: Yes (Life-Threatening)
  Sender: FDA-Public Use
  Company Number: PL-ROCHE-3091736

PATIENT
  Age: 62 Year
  Sex: Male
  Weight: 105 kg

DRUGS (5)
  1. ATEZOLIZUMAB [Suspect]
     Active Substance: ATEZOLIZUMAB
     Indication: Small cell lung cancer extensive stage
     Dosage: LAST DOSE OF ATEZOLIZUMAB ADMIN PRIOR AE AND SAE 1200 MG??ON 07/APR-2022 RECEIVED OF MOST RECENT DOS
     Route: 041
     Dates: start: 20220407
  2. CARBOPLATIN [Suspect]
     Active Substance: CARBOPLATIN
     Indication: Small cell lung cancer extensive stage
     Dosage: LAST DOSE OF CARBOPLATIN ADMIN PRIOR AE AND SAE 614.18 MG?ON 07/APR/2022 RECEIVED MOST RECENT DOSE O
     Route: 042
     Dates: start: 20220407
  3. ETOPOSIDE [Suspect]
     Active Substance: ETOPOSIDE
     Indication: Small cell lung cancer extensive stage
     Dosage: LAST DOSE OF ETOPOSIDE ADMINISTERED PRIOR TO AE AND SAE 215.02 MG?ON 09/APR/2022 RECEIVED MOST RECEN
     Route: 042
     Dates: start: 20220407
  4. BISOPROLOL [Concomitant]
     Active Substance: BISOPROLOL
     Indication: Hypertension
     Dates: start: 2021
  5. METOCLOPRAMIDE [Concomitant]
     Active Substance: METOCLOPRAMIDE
     Indication: Nausea
     Dates: start: 20220407

REACTIONS (1)
  - Hypersensitivity [Recovered/Resolved]

NARRATIVE: CASE EVENT DATE: 20220504
